FAERS Safety Report 14860989 (Version 2)
Quarter: 2018Q2

REPORT INFORMATION
  Report Type: Spontaneous
  Country: US (occurrence: US)
  Receive Date: 20180508
  Receipt Date: 20180523
  Transmission Date: 20180711
  Serious: Yes (Other)
  Sender: FDA-Public Use
  Company Number: US-AKORN PHARMACEUTICALS-2018AKN00570

PATIENT
  Sex: Female
  Weight: 52.15 kg

DRUGS (1)
  1. MYORISAN [Suspect]
     Active Substance: ISOTRETINOIN
     Indication: ACNE
     Dosage: 40 MG, 2X/DAY
     Route: 048
     Dates: start: 20180220, end: 20180425

REACTIONS (7)
  - Catatonia [Unknown]
  - Disturbance in attention [Unknown]
  - Depression [Unknown]
  - Self-injurious ideation [Unknown]
  - Fatigue [Unknown]
  - Weight decreased [Unknown]
  - Mood altered [Unknown]

NARRATIVE: CASE EVENT DATE: 2018
